FAERS Safety Report 12420590 (Version 2)
Quarter: 2016Q2

REPORT INFORMATION
  Report Type: Spontaneous
  Country: US (occurrence: US)
  Receive Date: 20160531
  Receipt Date: 20160622
  Transmission Date: 20160815
  Serious: No
  Sender: FDA-Public Use
  Company Number: US-GLAXOSMITHKLINE-US2016069537

PATIENT
  Age: 76 Year
  Sex: Female

DRUGS (11)
  1. BREO ELLIPTA [Suspect]
     Active Substance: FLUTICASONE FUROATE\VILANTEROL TRIFENATATE
     Indication: ASTHMA
     Dosage: 1 PUFF(S), QD
     Route: 055
     Dates: start: 201603
  2. TEMAZEPAM. [Concomitant]
     Active Substance: TEMAZEPAM
  3. TRAMADOL. [Concomitant]
     Active Substance: TRAMADOL
  4. FAMOTIDINE. [Concomitant]
     Active Substance: FAMOTIDINE
  5. SINGULAIR [Concomitant]
     Active Substance: MONTELUKAST SODIUM
  6. BENICAR [Concomitant]
     Active Substance: OLMESARTAN MEDOXOMIL
  7. PROAIR HFA [Concomitant]
     Active Substance: ALBUTEROL SULFATE
  8. ALPRAZOLAM. [Concomitant]
     Active Substance: ALPRAZOLAM
  9. CYCLOBENZAPRINE [Concomitant]
     Active Substance: CYCLOBENZAPRINE
  10. DICLOFENAC [Concomitant]
     Active Substance: DICLOFENAC
  11. LINZESS [Concomitant]
     Active Substance: LINACLOTIDE

REACTIONS (2)
  - Wrong technique in product usage process [Unknown]
  - Nervousness [Not Recovered/Not Resolved]

NARRATIVE: CASE EVENT DATE: 201603
